FAERS Safety Report 23794776 (Version 1)
Quarter: 2024Q2

REPORT INFORMATION
  Report Type: Spontaneous
  Country: JP (occurrence: JP)
  Receive Date: 20240429
  Receipt Date: 20240429
  Transmission Date: 20240716
  Serious: Yes (Death, Other)
  Sender: FDA-Public Use
  Company Number: JP-MSD-M2024-16228

PATIENT
  Age: 8 Decade
  Sex: Female

DRUGS (1)
  1. ZERBAXA [Suspect]
     Active Substance: CEFTOLOZANE SULFATE\TAZOBACTAM SODIUM
     Indication: Pneumonia
     Dosage: 1500 MILLIGRAM, TID
     Route: 041
     Dates: start: 202404

REACTIONS (3)
  - Amyotrophic lateral sclerosis [Fatal]
  - Pneumonia [Fatal]
  - Drug ineffective [Unknown]

NARRATIVE: CASE EVENT DATE: 20240401
